FAERS Safety Report 21259417 (Version 1)
Quarter: 2022Q3

REPORT INFORMATION
  Report Type: Spontaneous
  Country: US (occurrence: None)
  Receive Date: 20220825
  Receipt Date: 20220825
  Transmission Date: 20221027
  Serious: Yes (Other)
  Sender: FDA-Public Use
  Company Number: None

PATIENT
  Sex: Male
  Weight: 121.5 kg

DRUGS (9)
  1. TREMFYA [Suspect]
     Active Substance: GUSELKUMAB
     Indication: Psoriasis
     Dosage: OTHER FREQUENCY : Q8 WEEKS;?
     Route: 058
     Dates: start: 20220520
  2. ADVAIR DISKUS [Concomitant]
     Active Substance: FLUTICASONE PROPIONATE\SALMETEROL XINAFOATE
  3. albuterol HFA inhalation aerosol [Concomitant]
  4. clobetasol ext [Concomitant]
  5. desonide external cream [Concomitant]
  6. Enstillar external foam [Concomitant]
  7. hydrocortisone 0.5% external cream [Concomitant]
  8. KETOCONAZOLE [Concomitant]
     Active Substance: KETOCONAZOLE
  9. Sorilux external foam 0.005% [Concomitant]

REACTIONS (1)
  - Drug ineffective [None]
